FAERS Safety Report 9818405 (Version 2)
Quarter: 2014Q1

REPORT INFORMATION
  Report Type: Spontaneous
  Country: JP (occurrence: JP)
  Receive Date: 20140115
  Receipt Date: 20140123
  Transmission Date: 20141002
  Serious: Yes (Other)
  Sender: FDA-Public Use
  Company Number: JP-B.I. PHARMACEUTICALS,INC./RIDGEFIELD-2014-BI-01845NB

PATIENT
  Age: 65 Year
  Sex: Male

DRUGS (6)
  1. BI-SIFROL [Suspect]
     Indication: PARKINSON^S DISEASE
     Route: 048
  2. MADOPAR [Suspect]
     Indication: PARKINSON^S DISEASE
     Route: 048
  3. TAKEPRON [Suspect]
     Indication: GASTRIC ULCER HAEMORRHAGE
     Route: 048
  4. RIVOTRIL [Suspect]
     Route: 048
  5. SEROQUEL [Suspect]
     Route: 048
  6. MEMARY [Suspect]
     Route: 065

REACTIONS (1)
  - Liver disorder [Not Recovered/Not Resolved]
